FAERS Safety Report 26011439 (Version 2)
Quarter: 2025Q4

REPORT INFORMATION
  Report Type: Spontaneous
  Country: CN (occurrence: CN)
  Receive Date: 20251107
  Receipt Date: 20251118
  Transmission Date: 20260118
  Serious: Yes (Other)
  Sender: TEVA
  Company Number: CN-Pharmaand-2025001095

PATIENT
  Age: 44 Year
  Sex: Male

DRUGS (2)
  1. BENDAMUSTINE [Suspect]
     Active Substance: BENDAMUSTINE
     Indication: Cold type haemolytic anaemia
     Dosage: 90 MG/M2 ON DAYS 1-2
     Route: 042
  2. RITUXIMAB [Suspect]
     Active Substance: RITUXIMAB
     Indication: Lymphoplasmacytoid lymphoma/immunocytoma
     Dosage: 375 MG/M2 ON DAY 1
     Route: 065

REACTIONS (3)
  - Blister [Unknown]
  - Infection [Unknown]
  - Skin exfoliation [Unknown]
